FAERS Safety Report 6736945-7 (Version None)
Quarter: 2010Q2

REPORT INFORMATION
  Report Type: 
  Country: None (occurrence: None)
  Receive Date: 20100522
  Receipt Date: 20100507
  Transmission Date: 20101027
  Serious: Yes (Other)
  Sender: FDA-Public Use
  Company Number: US-JNJFOC-20100504476

PATIENT
  Sex: Male

DRUGS (2)
  1. TYLENOL INFANTS SUSP DROPS GRAPE [Suspect]
     Route: 048
  2. TYLENOL INFANTS SUSP DROPS GRAPE [Suspect]
     Indication: DRUG USE FOR UNKNOWN INDICATION
     Route: 048

REACTIONS (2)
  - RESPIRATORY TRACT INFECTION BACTERIAL [None]
  - TRANSMISSION OF AN INFECTIOUS AGENT VIA A MEDICINAL PRODUCT [None]
